FAERS Safety Report 18545374 (Version 1)
Quarter: 2020Q4

REPORT INFORMATION
  Report Type: Report from Study
  Country: US (occurrence: US)
  Receive Date: 20201125
  Receipt Date: 20201125
  Transmission Date: 20210114
  Serious: Yes (Other)
  Sender: FDA-Public Use
  Company Number: US-ASTRAZENECA-2020SF54437

PATIENT
  Sex: Male

DRUGS (7)
  1. VITAMIN C [Concomitant]
     Active Substance: ASCORBIC ACID
     Route: 065
  2. CALQUENCE [Suspect]
     Active Substance: ACALABRUTINIB
     Indication: CHRONIC LYMPHOCYTIC LEUKAEMIA
     Route: 048
     Dates: start: 20201026
  3. METOPROLOL SUCCINATE ER [Concomitant]
     Active Substance: METOPROLOL SUCCINATE
     Dosage: 25.0MG UNKNOWN
     Route: 065
  4. ALLOPURINOL. [Concomitant]
     Active Substance: ALLOPURINOL
     Dosage: 300.0MG UNKNOWN
     Route: 065
  5. METFORMIN [Concomitant]
     Active Substance: METFORMIN HYDROCHLORIDE
     Dosage: 500.0MG UNKNOWN
     Route: 065
  6. KAYEXOLATE [Concomitant]
     Route: 065
  7. ASPIRIN. [Concomitant]
     Active Substance: ASPIRIN
     Dosage: 81.0MG UNKNOWN
     Route: 065

REACTIONS (4)
  - White blood cell count decreased [Unknown]
  - Haemoglobin decreased [Unknown]
  - Abdominal pain [Unknown]
  - Haematuria [Unknown]
